FAERS Safety Report 24214045 (Version 1)
Quarter: 2024Q3

REPORT INFORMATION
  Report Type: Spontaneous
  Country: KR (occurrence: KR)
  Receive Date: 20240815
  Receipt Date: 20240815
  Transmission Date: 20241017
  Serious: Yes (Hospitalization)
  Sender: BAXTER
  Company Number: KR-BAXTER-2024BAX022745

PATIENT
  Age: 51 Year
  Sex: Male
  Weight: 48.2 kg

DRUGS (64)
  1. CYCLOPHOSPHAMIDE [Suspect]
     Active Substance: CYCLOPHOSPHAMIDE
     Indication: Diffuse large B-cell lymphoma
     Dosage: 1100 MG (750 MG/M2), (DOSAGE FORM- INFUSION), AS PART OF R-CHOP, (H16:00-22:00)
     Route: 042
     Dates: start: 20220728
  2. DOXORUBICIN [Suspect]
     Active Substance: DOXORUBICIN
     Indication: Diffuse large B-cell lymphoma
     Dosage: 74 MG (50 MG/M2), AS PART OF R-CHOP, (H22:15-22:45)
     Route: 065
     Dates: start: 20220728
  3. LENALIDOMIDE [Suspect]
     Active Substance: LENALIDOMIDE
     Indication: Diffuse large B-cell lymphoma
     Dosage: 25 MG QD, LAST DOSE PRIOR TO ONSET OF THE EVENT WAS GIVEN 04-AUG-2022
     Route: 048
     Dates: start: 20220728
  4. LENALIDOMIDE [Suspect]
     Active Substance: LENALIDOMIDE
     Dosage: UNK, BLINDED, INFORMATION WITHHELD
     Route: 065
     Dates: start: 20220811
  5. TAFASITAMAB [Suspect]
     Active Substance: TAFASITAMAB
     Indication: Diffuse large B-cell lymphoma
     Dosage: 564 MG QD, LAST DOSE PRIOR TO ONSET OF THE EVENT WAS GIVEN 28-JUL-2022.
     Route: 042
     Dates: start: 20220728
  6. TAFASITAMAB [Suspect]
     Active Substance: TAFASITAMAB
     Dosage: 564 MG, START DATE -11-AUG-2022
     Route: 042
  7. RITUXIMAB [Suspect]
     Active Substance: RITUXIMAB
     Indication: Diffuse large B-cell lymphoma
     Dosage: 550 MG (375 MG/M2), ONGOING, AS PART OF R-CHOP, (H14:30-16:00)
     Route: 042
     Dates: start: 20220728
  8. VINCRISTINE [Suspect]
     Active Substance: VINCRISTINE
     Indication: Diffuse large B-cell lymphoma
     Dosage: 2.0 MG (1.4 MG/M2), ONGOING, AS PAT OF R-CHOP, (H22:00-22:15)
     Route: 042
     Dates: start: 20220728
  9. PREDNISONE [Suspect]
     Active Substance: PREDNISONE
     Indication: Diffuse large B-cell lymphoma
     Dosage: 100 MG, ONGOING, AS PART OF R-CHOP
     Route: 065
     Dates: start: 20220728, end: 20220801
  10. LACTULOSE [Concomitant]
     Active Substance: LACTULOSE
     Dosage: UNK, (DULACKHAN)
     Route: 065
     Dates: start: 20220725, end: 20220725
  11. ENCOVER [Concomitant]
     Dosage: UNK, STOP DATE 03-AUG-2022 00:00
     Route: 065
  12. HARMONILAN [Concomitant]
     Dosage: UNK, STOP DATE 03-AUG-2022 00:00
     Route: 065
  13. OMAPONE [Concomitant]
     Indication: Prophylaxis
     Dosage: 952 ML QD , (TPN)
     Route: 042
     Dates: start: 20220728, end: 20220804
  14. OMAPONE [Concomitant]
     Dosage: 1448 ML
     Dates: start: 20220805
  15. CEFTAZIDIME [Concomitant]
     Active Substance: CEFTAZIDIME
     Dosage: UNK
     Route: 065
     Dates: start: 20220721, end: 20220803
  16. URSODIOL [Concomitant]
     Active Substance: URSODIOL
     Dosage: UNK
     Route: 065
     Dates: start: 20220705, end: 20220803
  17. DIETARY SUPPLEMENT\HERBALS\MILK THISTLE [Concomitant]
     Active Substance: MILK THISTLE
     Dosage: UNK
     Route: 065
     Dates: start: 20220705, end: 20220803
  18. SODIUM CHLORIDE [Concomitant]
     Active Substance: SODIUM CHLORIDE
     Indication: Prophylaxis
     Dosage: UNK
     Route: 065
     Dates: start: 20220718, end: 20220803
  19. SODIUM CHLORIDE [Concomitant]
     Active Substance: SODIUM CHLORIDE
     Dosage: 1 G TID
     Route: 048
     Dates: start: 20220810
  20. TRIAZOLAM [Concomitant]
     Active Substance: TRIAZOLAM
     Dosage: UNK
     Route: 065
     Dates: start: 20220712, end: 20220802
  21. COUGH SYRUP [Concomitant]
     Active Substance: DEXTROMETHORPHAN HYDROBROMIDE\GUAIFENESIN
     Dosage: UNK
     Route: 065
     Dates: start: 20220724, end: 20220803
  22. ACETYLCYSTEINE [Concomitant]
     Active Substance: ACETYLCYSTEINE
     Dosage: UNK
     Route: 065
     Dates: start: 20220725, end: 20220803
  23. TRAMADOL HYDROCHLORIDE [Concomitant]
     Active Substance: TRAMADOL HYDROCHLORIDE
     Dosage: UNK, ONGOING
     Route: 065
     Dates: start: 20220709
  24. BISOPROLOL FUMARATE [Concomitant]
     Active Substance: BISOPROLOL FUMARATE
     Dosage: UNK
     Route: 065
     Dates: start: 20220725, end: 20220803
  25. DEXAMETHASONE [Concomitant]
     Active Substance: DEXAMETHASONE
     Dosage: UNK
     Route: 065
     Dates: start: 20220725, end: 20220727
  26. PENIRAMIN [Concomitant]
     Dosage: UNK
     Route: 065
     Dates: start: 20220725, end: 20220728
  27. BEZAFIBRATE [Concomitant]
     Active Substance: BEZAFIBRATE
     Indication: Prophylaxis
     Dosage: UNK
     Route: 065
     Dates: start: 20220726, end: 20220803
  28. BEZAFIBRATE [Concomitant]
     Active Substance: BEZAFIBRATE
     Dosage: 200 MG BID
     Route: 048
     Dates: start: 20220811
  29. CORDARONE [Concomitant]
     Active Substance: AMIODARONE HYDROCHLORIDE
     Dosage: UNK
     Route: 065
     Dates: start: 20220726, end: 20220726
  30. LASIX [Concomitant]
     Active Substance: FUROSEMIDE
     Dosage: UNK
     Route: 065
     Dates: start: 20220728, end: 20220729
  31. ALMAGATE [Concomitant]
     Active Substance: ALMAGATE
     Indication: Prophylaxis
     Dosage: 1.5 GRAM QID (EVERY OTHER DAY)
     Route: 048
     Dates: start: 20220728, end: 20220802
  32. ASPIRIN [Concomitant]
     Active Substance: ASPIRIN
     Indication: Thrombosis prophylaxis
     Dosage: UNK
     Route: 048
     Dates: start: 20220728, end: 20220803
  33. AKYNZEO [Concomitant]
     Dosage: UNK
     Route: 065
     Dates: start: 20220728, end: 20220728
  34. ATIVAN [Concomitant]
     Active Substance: LORAZEPAM
     Indication: Nausea
     Dosage: 4 MG ONCE
     Route: 042
     Dates: start: 20220728, end: 20220802
  35. ATIVAN [Concomitant]
     Active Substance: LORAZEPAM
     Indication: Vomiting
  36. METOCLOPRAMIDE HYDROCHLORIDE [Concomitant]
     Active Substance: METOCLOPRAMIDE HYDROCHLORIDE
     Indication: Prophylaxis of nausea and vomiting
     Dosage: 10 MG TID
     Route: 042
     Dates: start: 20220729, end: 20220802
  37. METOCLOPRAMIDE HYDROCHLORIDE [Concomitant]
     Active Substance: METOCLOPRAMIDE HYDROCHLORIDE
     Dosage: 10 MG TID
     Route: 042
     Dates: start: 20220807
  38. LAFUTIDINE [Concomitant]
     Active Substance: LAFUTIDINE
     Dosage: BID
     Route: 065
     Dates: start: 20220728, end: 20220803
  39. CYTOTEC [Concomitant]
     Active Substance: MISOPROSTOL
     Dosage: UNK
     Route: 065
     Dates: start: 20220728, end: 20220802
  40. ALLOPURINOL [Concomitant]
     Active Substance: ALLOPURINOL
     Indication: Prophylaxis
     Dosage: 300 MG TID
     Route: 048
     Dates: start: 20220728, end: 20220802
  41. ALLOPURINOL [Concomitant]
     Active Substance: ALLOPURINOL
     Dosage: 300 MG TID
     Route: 048
     Dates: start: 20220810
  42. ACYCLOVIR [Concomitant]
     Active Substance: ACYCLOVIR
     Indication: Infection prophylaxis
     Dosage: UNK
     Route: 065
     Dates: start: 20220728, end: 20220803
  43. ACYCLOVIR [Concomitant]
     Active Substance: ACYCLOVIR
     Dosage: 400 MG BID
     Route: 048
     Dates: start: 20220810
  44. SULFAMETHOXAZOLE\TRIMETHOPRIM [Concomitant]
     Active Substance: SULFAMETHOXAZOLE\TRIMETHOPRIM
     Indication: Infection prophylaxis
     Dosage: UNK
     Route: 065
     Dates: start: 20220728, end: 20220803
  45. SULFAMETHOXAZOLE\TRIMETHOPRIM [Concomitant]
     Active Substance: SULFAMETHOXAZOLE\TRIMETHOPRIM
     Dosage: 1 TAB QD
     Route: 048
     Dates: start: 20220810
  46. PLUNAZOLE [Concomitant]
     Indication: Infection prophylaxis
     Dosage: UNK
     Route: 065
     Dates: start: 20220728, end: 20220803
  47. PLUNAZOLE [Concomitant]
     Dosage: 300 MG QD
     Route: 048
     Dates: start: 20220810
  48. HYDROCORTISONE SODIUM SUCCINATE [Concomitant]
     Active Substance: HYDROCORTISONE SODIUM SUCCINATE
     Dosage: UNK, (START TIME: 10:30)
     Route: 065
     Dates: start: 20220728, end: 20220728
  49. TYLENOL [Concomitant]
     Active Substance: ACETAMINOPHEN
     Dosage: UNK, (START TIME: 10:30)
     Route: 065
     Dates: start: 20220728, end: 20220728
  50. SODIUM BICARBONATE [Concomitant]
     Active Substance: SODIUM BICARBONATE
     Dosage: UNK
     Route: 065
     Dates: start: 20220729, end: 20220729
  51. FENTORA [Concomitant]
     Active Substance: FENTANYL CITRATE
     Indication: Abdominal pain
     Dosage: 200 MCG PRN
     Route: 048
     Dates: start: 20220804
  52. BROPIUM [Concomitant]
     Indication: Abdominal pain
     Dosage: 5 MG QD
     Route: 042
     Dates: start: 20220804, end: 20220804
  53. FENTADUR [Concomitant]
     Dosage: 12 MCG ONCE IN THREE DAYS , ONGOING
     Route: 062
     Dates: start: 20220804
  54. PANTOPRAZOLE SODIUM [Concomitant]
     Active Substance: PANTOPRAZOLE SODIUM
     Indication: Abdominal pain
     Dosage: 40 MG QD, ONGOING
     Route: 042
     Dates: start: 20220802, end: 20220803
  55. MELATONIN [Concomitant]
     Active Substance: MELATONIN
     Indication: Prophylaxis
     Dosage: PR 2 MG QD
     Route: 048
     Dates: start: 20220803
  56. Bioflora [Concomitant]
     Indication: Prophylaxis
     Dosage: 250 MG QD
     Route: 048
     Dates: start: 20220730, end: 20220730
  57. NEULASTA [Concomitant]
     Active Substance: PEGFILGRASTIM
     Indication: Neutropenia
     Dosage: 6 MG ONCE
     Route: 058
     Dates: start: 20220729, end: 20220729
  58. POLYBUTINE [Concomitant]
     Indication: Nausea
     Dosage: 100 MG TID
     Route: 048
     Dates: start: 20220806, end: 20220810
  59. POLYBUTINE [Concomitant]
     Indication: Vomiting
     Dosage: 100 MG TID
     Route: 048
     Dates: start: 20220811
  60. PHOSTEN [Concomitant]
     Indication: Prophylaxis
     Dosage: 20 ML QD
     Route: 042
     Dates: start: 20220806, end: 20220807
  61. GASTER [Concomitant]
     Active Substance: FAMOTIDINE
     Indication: Abdominal pain
     Dosage: 20 MG BID
     Route: 042
     Dates: start: 20220806
  62. TIROPRAMIDE [Concomitant]
     Active Substance: TIROPRAMIDE
     Indication: Abdominal pain
     Dosage: 100 MG BID
     Route: 065
     Dates: start: 20220806, end: 20220807
  63. ORNITHINE ASPARTATE [Concomitant]
     Active Substance: ORNITHINE ASPARTATE
     Indication: Prophylaxis
     Dosage: 1000 MG QD
     Route: 042
     Dates: start: 20220808
  64. Stavic [Concomitant]
     Indication: Prophylaxis
     Dosage: 3 GRAM BID
     Route: 048
     Dates: start: 20220731, end: 20220802

REACTIONS (5)
  - Ileus [Recovered/Resolved]
  - Neutropenia [Recovered/Resolved]
  - Abdominal pain [Recovering/Resolving]
  - Nausea [Recovering/Resolving]
  - Vomiting [Recovering/Resolving]

NARRATIVE: CASE EVENT DATE: 20220802
